FAERS Safety Report 7290327-0 (Version None)
Quarter: 2011Q1

REPORT INFORMATION
  Report Type: 
  Country: None (occurrence: None)
  Receive Date: 20110209
  Receipt Date: 20110209
  Transmission Date: 20110831
  Serious: Yes (Other)
  Sender: FDA-Public Use
  Company Number: None

PATIENT
  Sex: Female
  Weight: 105.2345 kg

DRUGS (4)
  1. ATACAND [Concomitant]
  2. MELOXICAM [Suspect]
     Indication: ARTHRITIS
     Dosage: 7.5MG QDAY PO (MOBIC GENERIC) (SPRING '07)
     Route: 048
     Dates: start: 20070101
  3. LIPITOR [Concomitant]
  4. EVISTA [Concomitant]

REACTIONS (2)
  - OEDEMA [None]
  - PRODUCT SUBSTITUTION ISSUE [None]
